FAERS Safety Report 6317677-6 (Version None)
Quarter: 2009Q3

REPORT INFORMATION
  Report Type: 
  Country: None (occurrence: None)
  Receive Date: 20090821
  Receipt Date: 20090814
  Transmission Date: 20100115
  Serious: Yes (Hospitalization)
  Sender: FDA-Public Use
  Company Number: PHHY2009MX34473

PATIENT
  Age: 70 Year
  Sex: Female

DRUGS (3)
  1. ACLASTA [Suspect]
     Indication: OSTEOPOROSIS
     Dosage: 1 INJECTION (5MG/100 ML) PER DAY
     Route: 042
     Dates: start: 20090301, end: 20090301
  2. KEFLEX [Concomitant]
  3. KETOROLAC TROMETHAMINE [Concomitant]

REACTIONS (1)
  - BLADDER OPERATION [None]
